FAERS Safety Report 6761252-6 (Version None)
Quarter: 2010Q2

REPORT INFORMATION
  Report Type: 
  Country: None (occurrence: None)
  Receive Date: 20100608
  Receipt Date: 20100528
  Transmission Date: 20101027
  Serious: Yes (Other)
  Sender: FDA-Public Use
  Company Number: US-JNJCH-2010013341

PATIENT
  Age: 59 Year
  Sex: Female
  Weight: 122.5 kg

DRUGS (2)
  1. NEOSPORIN [Suspect]
     Indication: EXCORIATION
     Dosage: TEXT:ONCE
     Route: 061
     Dates: start: 20100526, end: 20100526
  2. NEOSPORIN [Suspect]
     Indication: ARTHROPOD BITE

REACTIONS (5)
  - APPLICATION SITE PAIN [None]
  - APPLICATION SITE PRURITUS [None]
  - OFF LABEL USE [None]
  - URTICARIA [None]
  - WOUND SECRETION [None]
